FAERS Safety Report 6241635-3 (Version None)
Quarter: 2009Q2

REPORT INFORMATION
  Report Type: 
  Country: None (occurrence: None)
  Receive Date: 20090623
  Receipt Date: 20041129
  Transmission Date: 20091009
  Serious: Yes (Hospitalization)
  Sender: FDA-Public Use
  Company Number: CA-ROCHE-421381

PATIENT
  Sex: Female
  Weight: 56.6 kg

DRUGS (99)
  1. DACLIZUMAB [Suspect]
     Dosage: BASELINE VISIT
     Route: 042
     Dates: start: 20040630
  2. DACLIZUMAB [Suspect]
     Dosage: FREQUENCY PER PROTOCOL
     Route: 042
     Dates: start: 20040714, end: 20040825
  3. MYCOPHENOLATE MOFETIL [Suspect]
     Dosage: DRUG NAME: MOFETILMYCOPHENOLATE CHLORYDRATE
     Route: 048
     Dates: start: 20040630
  4. MYCOPHENOLATE MOFETIL [Suspect]
     Route: 048
     Dates: start: 20040701, end: 20040802
  5. MYCOPHENOLATE MOFETIL [Suspect]
     Dosage: DRUG NAME: MOFETILMYCOPHENOLATE CHLORYDRATE
     Route: 048
     Dates: start: 20040803
  6. MYCOPHENOLATE MOFETIL [Suspect]
     Route: 048
     Dates: start: 20040804
  7. MYCOPHENOLATE MOFETIL [Suspect]
     Route: 048
     Dates: start: 20040819
  8. MYCOPHENOLATE MOFETIL [Suspect]
     Route: 048
     Dates: start: 20040820
  9. MYCOPHENOLATE MOFETIL [Suspect]
     Route: 048
     Dates: start: 20040908
  10. MYCOPHENOLATE MOFETIL [Suspect]
     Route: 048
     Dates: start: 20041029
  11. MYCOPHENOLATE MOFETIL [Suspect]
     Route: 048
     Dates: start: 20041112
  12. MYCOPHENOLATE MOFETIL [Suspect]
     Route: 048
     Dates: start: 20041223
  13. MYCOPHENOLATE MOFETIL [Suspect]
     Route: 048
     Dates: start: 20050330
  14. MYCOPHENOLATE MOFETIL [Suspect]
     Route: 048
     Dates: start: 20050601
  15. MYCOPHENOLATE MOFETIL [Suspect]
     Route: 048
     Dates: start: 20050909
  16. MYCOPHENOLATE MOFETIL [Suspect]
     Route: 048
     Dates: start: 20051021
  17. MYCOPHENOLATE MOFETIL [Suspect]
     Route: 048
     Dates: start: 20051223
  18. MYCOPHENOLATE MOFETIL [Suspect]
     Route: 048
     Dates: start: 20060211
  19. MYCOPHENOLATE MOFETIL [Suspect]
     Route: 048
     Dates: start: 20060516
  20. MYCOPHENOLATE MOFETIL [Suspect]
     Route: 048
     Dates: start: 20060609
  21. MYCOPHENOLATE MOFETIL [Suspect]
     Route: 048
     Dates: start: 20060627
  22. SIROLIMUS [Suspect]
     Route: 048
     Dates: start: 20040630, end: 20040803
  23. SIROLIMUS [Suspect]
     Route: 048
     Dates: start: 20040804, end: 20040816
  24. SIROLIMUS [Suspect]
     Route: 048
     Dates: start: 20040817, end: 20040819
  25. SIROLIMUS [Suspect]
     Route: 048
     Dates: start: 20040820, end: 20041102
  26. SIROLIMUS [Suspect]
     Route: 048
     Dates: start: 20050325
  27. SIROLIMUS [Suspect]
     Route: 048
     Dates: start: 20050505
  28. SIROLIMUS [Suspect]
     Route: 048
     Dates: start: 20051001, end: 20060126
  29. SIROLIMUS [Suspect]
     Route: 048
     Dates: start: 20060127
  30. SIROLIMUS [Suspect]
     Route: 048
     Dates: start: 20060218, end: 20060512
  31. SIROLIMUS [Suspect]
     Route: 048
     Dates: start: 20041103, end: 20050324
  32. TACROLIMUS [Suspect]
     Route: 048
     Dates: start: 20060512, end: 20060714
  33. TACROLIMUS [Suspect]
     Route: 048
     Dates: start: 20060715
  34. TACROLIMUS [Suspect]
     Route: 048
     Dates: start: 20070127
  35. HYDROCORTISONE SODIUM SUCCINATE [Suspect]
     Route: 042
     Dates: start: 20040912
  36. HYDROCORTISONE SODIUM SUCCINATE [Suspect]
     Route: 042
     Dates: start: 20040913
  37. METHYLPREDNISOLONE [Suspect]
     Dosage: FORMULATION: VIAL
     Route: 042
     Dates: start: 20040701
  38. METHYLPREDNISOLONE [Suspect]
     Route: 042
     Dates: start: 20040702
  39. METHYLPREDNISOLONE [Suspect]
     Route: 042
     Dates: start: 20040703
  40. METHYLPREDNISOLONE [Suspect]
     Route: 042
     Dates: start: 20040704
  41. METHYLPREDNISOLONE [Suspect]
     Route: 042
     Dates: start: 20040709, end: 20040709
  42. METHYLPREDNISOLONE [Suspect]
     Route: 042
     Dates: start: 20040710, end: 20040714
  43. METHYLPREDNISOLONE [Suspect]
     Route: 042
     Dates: start: 20041108, end: 20041112
  44. PREDNISOLONE [Suspect]
     Route: 048
     Dates: start: 20040705
  45. PREDNISOLONE [Suspect]
     Route: 048
     Dates: start: 20040706
  46. PREDNISOLONE [Suspect]
     Route: 048
     Dates: start: 20040707
  47. PREDNISOLONE [Suspect]
     Route: 048
     Dates: start: 20040708
  48. PREDNISOLONE [Suspect]
     Route: 048
     Dates: start: 20040709
  49. PREDNISOLONE [Suspect]
     Route: 048
     Dates: start: 20040710
  50. PREDNISOLONE [Suspect]
     Route: 048
     Dates: start: 20040714
  51. PREDNISOLONE [Suspect]
     Route: 048
     Dates: start: 20040720
  52. PREDNISOLONE [Suspect]
     Route: 048
     Dates: start: 20040721, end: 20040912
  53. PREDNISOLONE [Suspect]
     Route: 048
     Dates: start: 20040913
  54. PREDNISOLONE [Suspect]
     Route: 048
     Dates: start: 20041105, end: 20050805
  55. ACTONEL [Concomitant]
     Dosage: DRUG NAME: RISEDRONATE SODIUM HEMIPENTAHYDRATE
     Route: 048
     Dates: start: 20040824, end: 20060109
  56. MONOCOR [Concomitant]
     Dosage: DRUG NAME: BISOPROLOL FUMARATE
     Route: 048
     Dates: start: 20040701, end: 20040825
  57. MONOCOR [Concomitant]
     Route: 048
     Dates: start: 20040826, end: 20060209
  58. CALCIUM [Concomitant]
     Dates: start: 20040824
  59. VITAMINE D [Concomitant]
     Route: 048
     Dates: start: 20040824
  60. LIPITOR [Concomitant]
     Dosage: DRUG NAME: ATORVASTATIN CALCIUM
     Route: 048
     Dates: start: 20040909
  61. LASIX [Concomitant]
     Dosage: DRUG NAME: FUROSEMIDE
     Route: 048
     Dates: start: 20050318, end: 20050414
  62. LASIX [Concomitant]
     Route: 048
     Dates: start: 20050428
  63. ZANTAC [Concomitant]
     Dosage: DRUG NAME: RANITIDINE HYDROCHLORIDE
     Route: 048
     Dates: start: 20040703
  64. AMLODIPINE BESYLATE [Concomitant]
     Route: 048
     Dates: start: 20040704, end: 20040807
  65. CALCIUM CARBONATE [Concomitant]
     Route: 048
     Dates: start: 20040824
  66. CIPROFLOXACIN HYDROCHLORIDE [Concomitant]
     Route: 042
     Dates: start: 20040912
  67. CIPROFLOXACIN HYDROCHLORIDE [Concomitant]
     Route: 042
     Dates: start: 20040913, end: 20040914
  68. CIPROFLOXACIN HYDROCHLORIDE [Concomitant]
     Route: 048
     Dates: start: 20040915, end: 20041003
  69. CLONIDINE [Concomitant]
     Dosage: DRUG NAME: CLONIDINE CHLORYDRATE
     Route: 048
     Dates: start: 20040705, end: 20040716
  70. DARBEPOETIN ALFA [Concomitant]
     Dosage: DRUG NAME: DARBEPOIETINE ALPHA
     Route: 058
     Dates: start: 20040710
  71. DARBEPOETIN ALFA [Concomitant]
     Route: 058
     Dates: start: 20040713
  72. DIMENHYDRINATE [Concomitant]
     Route: 042
     Dates: start: 20040701
  73. DIPHENHYDRAMINE HYDROCHLORIDE [Concomitant]
     Route: 042
     Dates: start: 20040704
  74. DOCUSATE SODIUM [Concomitant]
     Route: 048
     Dates: start: 20040716, end: 20050317
  75. FAMOTIDINE [Concomitant]
     Route: 042
     Dates: start: 20040701, end: 20040703
  76. GENTAMYCIN SULFATE [Concomitant]
     Dosage: DRUG NAME: GENTAMYCIN SULFATE
     Route: 042
     Dates: start: 20040912
  77. HEPARIN [Concomitant]
     Route: 058
     Dates: start: 20040701, end: 20040708
  78. HYDROMORPHONE HYDROCHLORIDE [Concomitant]
     Route: 042
     Dates: start: 20040630, end: 20040703
  79. HYDROMORPHONE HYDROCHLORIDE [Concomitant]
     Route: 048
     Dates: start: 20040704, end: 20040815
  80. INSULIN [Concomitant]
     Route: 058
     Dates: start: 20040630, end: 20040820
  81. IRON DEXTRAN [Concomitant]
     Route: 042
     Dates: start: 20040811
  82. IRON DEXTRAN [Concomitant]
     Route: 042
     Dates: start: 20040814
  83. LINEZOLID [Concomitant]
     Route: 048
     Dates: start: 20040820, end: 20040827
  84. LORAZEPAM [Concomitant]
     Route: 048
     Dates: start: 20040704, end: 20040823
  85. MAXERAN [Concomitant]
     Route: 042
     Dates: start: 20040701, end: 20040703
  86. METRONIDAZOLE [Concomitant]
     Dosage: FORMULATION: VIAL
     Route: 042
     Dates: start: 20040728, end: 20040728
  87. METRONIDAZOLE [Concomitant]
     Route: 042
     Dates: start: 20040731, end: 20040802
  88. METRONIDAZOLE [Concomitant]
     Route: 042
     Dates: start: 20040803, end: 20040803
  89. METRONIDAZOLE [Concomitant]
     Route: 042
     Dates: start: 20040729, end: 20040730
  90. METRONIDAZOLE [Concomitant]
     Route: 048
     Dates: start: 20040803, end: 20040803
  91. METRONIDAZOLE [Concomitant]
     Route: 048
     Dates: start: 20040804, end: 20040902
  92. NYSTATINE [Concomitant]
     Dosage: ROUTE: VA
     Route: 050
     Dates: start: 20040703, end: 20040703
  93. NYSTATINE [Concomitant]
     Route: 048
     Dates: start: 20040703, end: 20041125
  94. SACCHARATED IRON OXIDE [Concomitant]
     Dosage: DRUG NAME: SACCHARATED IRON OXYDE
     Route: 042
     Dates: start: 20040812, end: 20040814
  95. SENNOSIDES [Concomitant]
     Route: 048
     Dates: start: 20040705, end: 20040820
  96. SULFAMETHOXAZOLE AND TRIMETHOPRIM [Concomitant]
     Dosage: DRUG NAME: SULFAMETHOXAZOLE-TRIMETHOPRIME
     Route: 048
     Dates: start: 20040705, end: 20050805
  97. VANCOMYCIN [Concomitant]
     Dosage: DRUG NAME: VANCOMYCINE CHLORHYDRATE
     Route: 042
     Dates: start: 20040728
  98. VANCOMYCIN [Concomitant]
     Route: 042
     Dates: start: 20040729, end: 20040803
  99. VANCOMYCIN [Concomitant]
     Dosage: ROUTE: ORAL UNITS REPORTED AS GM, WHCI SEEMS TO BE A TYPO AND THEREFORE CAPTURED AS MG
     Route: 042
     Dates: start: 20040804, end: 20040820

REACTIONS (8)
  - CULTURE URINE POSITIVE [None]
  - ESCHERICHIA INFECTION [None]
  - IMMUNOSUPPRESSION [None]
  - KLEBSIELLA INFECTION [None]
  - PSEUDOMONAS INFECTION [None]
  - PYELONEPHRITIS [None]
  - PYELONEPHRITIS ACUTE [None]
  - URINARY TRACT INFECTION [None]
